FAERS Safety Report 4917091-1 (Version None)
Quarter: 2006Q1

REPORT INFORMATION
  Report Type: 
  Country: None (occurrence: None)
  Receive Date: 20060216
  Receipt Date: 20060216
  Transmission Date: 20060701
  Serious: No
  Sender: FDA-Public Use
  Company Number: None

PATIENT
  Age: 71 Year
  Sex: Male
  Weight: 83.1 kg

DRUGS (8)
  1. ZOCOR [Suspect]
  2. CALCITONIN-SALMON [Concomitant]
  3. LISINOPRIL [Concomitant]
  4. LORATADINE [Concomitant]
  5. SIMVASTATIN [Concomitant]
  6. RANITIDINE HCL [Concomitant]
  7. CALCIUM 500MG/VITAMIN D [Concomitant]
  8. FLUNISOLIDE [Concomitant]

REACTIONS (1)
  - MYALGIA [None]
